FAERS Safety Report 19042354 (Version 1)
Quarter: 2021Q1

REPORT INFORMATION
  Report Type: Spontaneous
  Country: US (occurrence: US)
  Receive Date: 20210323
  Receipt Date: 20210323
  Transmission Date: 20210420
  Serious: Yes (Hospitalization, Other)
  Sender: FDA-Public Use
  Company Number: US-PFIZER INC-2021274874

PATIENT
  Age: 3 Year
  Sex: Female

DRUGS (3)
  1. DIMERCAPROL. [Concomitant]
     Active Substance: DIMERCAPROL
     Indication: CHELATION THERAPY
     Dosage: UNK
  2. CIPROFLOXACIN. [Suspect]
     Active Substance: CIPROFLOXACIN
     Indication: ESCHERICHIA INFECTION
     Dosage: UNK
  3. CALCIUM DISODIUM EDETATE [Concomitant]
     Indication: CHELATION THERAPY
     Dosage: UNK

REACTIONS (2)
  - Inappropriate antidiuretic hormone secretion [Unknown]
  - Hyponatraemia [Unknown]
